FAERS Safety Report 10078153 (Version 1)
Quarter: 2014Q2

REPORT INFORMATION
  Report Type: Spontaneous
  Country: US (occurrence: US)
  Receive Date: 20140415
  Receipt Date: 20140415
  Transmission Date: 20141212
  Serious: No
  Sender: FDA-Public Use
  Company Number: US-BIOGENIDEC-2013BI102339

PATIENT
  Age: 52 Year
  Sex: Female

DRUGS (4)
  1. AVONEX [Suspect]
     Indication: MULTIPLE SCLEROSIS
     Route: 030
  2. AVONEX [Suspect]
     Indication: MULTIPLE SCLEROSIS
     Route: 030
     Dates: start: 20100806
  3. AVONEX [Suspect]
     Indication: MULTIPLE SCLEROSIS
     Route: 030
     Dates: start: 20131120
  4. ALPRAZOLAM [Concomitant]

REACTIONS (25)
  - Osteoarthritis [Not Recovered/Not Resolved]
  - Stress [Not Recovered/Not Resolved]
  - Contusion [Recovered/Resolved]
  - Fibromyalgia [Not Recovered/Not Resolved]
  - Vitamin B12 deficiency [Not Recovered/Not Resolved]
  - Hemiparesis [Recovered/Resolved]
  - Retching [Recovered/Resolved]
  - Tremor [Recovered/Resolved]
  - Spondylitis [Not Recovered/Not Resolved]
  - Fall [Recovered/Resolved]
  - Balance disorder [Recovered/Resolved]
  - Memory impairment [Not Recovered/Not Resolved]
  - Hypoaesthesia [Unknown]
  - Intervertebral disc degeneration [Not Recovered/Not Resolved]
  - Weight decreased [Not Recovered/Not Resolved]
  - Chondropathy [Recovered/Resolved]
  - Anxiety [Unknown]
  - Depression [Not Recovered/Not Resolved]
  - Fatigue [Not Recovered/Not Resolved]
  - Influenza like illness [Recovered/Resolved]
  - Muscle spasms [Recovered/Resolved]
  - Nausea [Recovered/Resolved]
  - Asthenia [Not Recovered/Not Resolved]
  - Multiple sclerosis relapse [Not Recovered/Not Resolved]
  - Arthritis [Not Recovered/Not Resolved]
